FAERS Safety Report 5972957-9 (Version None)
Quarter: 2008Q4

REPORT INFORMATION
  Report Type: 
  Country: None (occurrence: None)
  Receive Date: 20081201
  Receipt Date: 20081121
  Transmission Date: 20090506
  Serious: Yes (Other)
  Sender: FDA-Public Use
  Company Number: PHBS2008TN06428

PATIENT
  Sex: Male

DRUGS (6)
  1. CYCLOSPORINE [Suspect]
     Indication: BONE MARROW TRANSPLANT
     Dosage: 3 MG/KG/DAY
     Route: 042
  2. CYCLOSPORINE [Suspect]
     Dosage: UNK
     Route: 048
  3. BUSULPHAN [Concomitant]
     Dosage: 16 MG/KG
  4. ENDOXAN [Concomitant]
     Dosage: 200 MG/KG
  5. ATGAM [Concomitant]
     Dosage: 15 MG/KG
  6. GANCICLOVIR [Suspect]
     Indication: CYTOMEGALOVIRUS TEST

REACTIONS (6)
  - CYTOMEGALOVIRUS INFECTION [None]
  - DIARRHOEA [None]
  - GRAFT VERSUS HOST DISEASE [None]
  - SKIN DEPIGMENTATION [None]
  - SKIN LESION [None]
  - VITILIGO [None]
